FAERS Safety Report 10560969 (Version 2)
Quarter: 2014Q4

REPORT INFORMATION
  Report Type: Spontaneous
  Country: FR (occurrence: FR)
  Receive Date: 20141103
  Receipt Date: 20141105
  Transmission Date: 20150529
  Serious: Yes (Other)
  Sender: FDA-Public Use
  Company Number: FR-PFIZER INC-2014299005

PATIENT
  Age: 79 Year
  Sex: Male

DRUGS (8)
  1. CALCIUM GLUCONATE. [Suspect]
     Active Substance: CALCIUM GLUCONATE
     Dosage: 1 G, SINGLE
     Route: 041
     Dates: start: 20140731, end: 20140731
  2. OXALIPLATIN. [Suspect]
     Active Substance: OXALIPLATIN
     Indication: COLON CANCER METASTATIC
     Dosage: 120 MG, SINGLE
     Route: 041
     Dates: start: 20140731, end: 20140731
  3. MAGNESIUM SULFATE. [Suspect]
     Active Substance: MAGNESIUM SULFATE
     Dosage: 1 G, SINGLE
     Route: 041
     Dates: start: 20140731, end: 20140731
  4. VECTIBIX [Suspect]
     Active Substance: PANITUMUMAB
     Indication: COLON CANCER METASTATIC
     Dosage: 515 MG, SINGLE
     Route: 041
     Dates: start: 20140731, end: 20140731
  5. SOLU-MEDROL [Suspect]
     Active Substance: METHYLPREDNISOLONE SODIUM SUCCINATE
     Dosage: 1 DF, SINGLE
     Route: 041
     Dates: start: 20140731, end: 20140731
  6. ZOPHREN [Suspect]
     Active Substance: ONDANSETRON
     Dosage: 1 DF, SINGLE
     Route: 041
     Dates: start: 20140731, end: 20140731
  7. FLUOROURACIL. [Suspect]
     Active Substance: FLUOROURACIL
     Indication: COLON CANCER METASTATIC
     Dosage: 5260 MG, SINGLE
     Route: 041
     Dates: start: 20140731, end: 20140731
  8. CALCIUM FOLINATE [Suspect]
     Active Substance: LEUCOVORIN CALCIUM
     Indication: COLON CANCER METASTATIC
     Dosage: 760 MG, SINGLE
     Dates: start: 20140731, end: 20140731

REACTIONS (4)
  - Erythema [Recovered/Resolved]
  - Acute generalised exanthematous pustulosis [Recovered/Resolved]
  - Oedema [Recovered/Resolved]
  - Mucosal inflammation [Recovered/Resolved]

NARRATIVE: CASE EVENT DATE: 201408
